FAERS Safety Report 12698592 (Version 1)
Quarter: 2016Q3

REPORT INFORMATION
  Report Type: Spontaneous
  Country: US (occurrence: US)
  Receive Date: 20160830
  Receipt Date: 20160830
  Transmission Date: 20161109
  Serious: No
  Sender: FDA-Public Use
  Company Number: US-BAYER-2016-163316

PATIENT
  Age: 63 Year
  Sex: Male
  Weight: 104.31 kg

DRUGS (2)
  1. ALEVE PM [Suspect]
     Active Substance: DIPHENHYDRAMINE HYDROCHLORIDE\NAPROXEN SODIUM
     Indication: ANALGESIC THERAPY
     Dosage: 2 DF AT BEDTIME, PRN
     Route: 048
     Dates: start: 20160817
  2. ALEVE PM [Suspect]
     Active Substance: DIPHENHYDRAMINE HYDROCHLORIDE\NAPROXEN SODIUM
     Indication: SLEEP DISORDER THERAPY
     Dosage: 3 DF, UNK
     Dates: start: 20160819, end: 20160819

REACTIONS (3)
  - Product use issue [None]
  - Expired product administered [None]
  - Somnolence [None]

NARRATIVE: CASE EVENT DATE: 20160819
